FAERS Safety Report 12589085 (Version 1)
Quarter: 2016Q3

REPORT INFORMATION
  Report Type: Spontaneous
  Country: US (occurrence: US)
  Receive Date: 20160725
  Receipt Date: 20160725
  Transmission Date: 20161109
  Serious: No
  Sender: FDA-Public Use
  Company Number: US-JNJFOC-20160705020

PATIENT
  Sex: Female

DRUGS (2)
  1. ZYRTEC [Suspect]
     Active Substance: CETIRIZINE HYDROCHLORIDE
     Route: 048
  2. ZYRTEC [Suspect]
     Active Substance: CETIRIZINE HYDROCHLORIDE
     Indication: MULTIPLE ALLERGIES
     Dosage: 10 MG PER TABLET
     Route: 048

REACTIONS (5)
  - Inappropriate schedule of drug administration [Unknown]
  - Product lot number issue [Unknown]
  - Product expiration date issue [Unknown]
  - Off label use [Unknown]
  - Prescribed overdose [Unknown]
